FAERS Safety Report 8485537-0 (Version None)
Quarter: 2012Q2

REPORT INFORMATION
  Report Type: 
  Country: None (occurrence: None)
  Receive Date: 20120627
  Receipt Date: 20120627
  Transmission Date: 20120825
  Serious: No
  Sender: FDA-Public Use
  Company Number: None

PATIENT
  Age: 43 Year
  Sex: Female
  Weight: 122.4712 kg

DRUGS (1)
  1. LOSARTAN POT TAB 100MG TORRENT PHARM [Suspect]
     Indication: HYPERTENSION
     Dates: start: 20120330, end: 20120625

REACTIONS (5)
  - BACK PAIN [None]
  - JOINT SWELLING [None]
  - OEDEMA PERIPHERAL [None]
  - PAIN IN EXTREMITY [None]
  - ARTHRALGIA [None]
